FAERS Safety Report 5010082-4 (Version None)
Quarter: 2006Q2

REPORT INFORMATION
  Report Type: 
  Country: None (occurrence: None)
  Receive Date: 20060523
  Receipt Date: 20060512
  Transmission Date: 20061013
  Serious: Yes (Other)
  Sender: FDA-Public Use
  Company Number: 2006047220

PATIENT
  Age: 88 Year
  Sex: Female

DRUGS (8)
  1. DILANTIN [Suspect]
     Indication: EPILEPSY
     Dosage: 200 MG (100 MG, 2 IN 1 D), ORAL
     Route: 048
  2. ARICEPT [Suspect]
     Indication: DEMENTIA ALZHEIMER'S TYPE
     Dosage: 5 MG (5 MG, 1 IN 1 D), ORAL
     Route: 048
     Dates: start: 20060301, end: 20060301
  3. PRIMIDONE [Concomitant]
  4. ATENOLOL [Concomitant]
  5. LIPITOR [Concomitant]
  6. OROXINE (LEVOTHYROXINE SODIUM) [Concomitant]
  7. OSTELIN (ERGOCALCIFEROL) [Concomitant]
  8. IMDUR [Concomitant]

REACTIONS (1)
  - GRAND MAL CONVULSION [None]
